FAERS Safety Report 4590264-6 (Version None)
Quarter: 2005Q1

REPORT INFORMATION
  Report Type: 
  Country: None (occurrence: None)
  Receive Date: 20050224
  Receipt Date: 20050214
  Transmission Date: 20050727
  Serious: Yes (Other)
  Sender: FDA-Public Use
  Company Number: US-AMGEN-US113931

PATIENT
  Age: 38 Year
  Sex: Male

DRUGS (1)
  1. ENBREL [Suspect]
     Indication: PSORIATIC ARTHROPATHY
     Route: 058
     Dates: start: 20050211, end: 20050211

REACTIONS (8)
  - CHEST PAIN [None]
  - DYSPNOEA [None]
  - HYPERHIDROSIS [None]
  - HYPOTENSION [None]
  - INJECTION SITE IRRITATION [None]
  - INJECTION SITE REACTION [None]
  - LOSS OF CONSCIOUSNESS [None]
  - PRURITUS [None]
